FAERS Safety Report 8327424-4 (Version None)
Quarter: 2012Q2

REPORT INFORMATION
  Report Type: 
  Country: None (occurrence: None)
  Receive Date: 20120502
  Receipt Date: 20120423
  Transmission Date: 20120825
  Serious: Yes (Other)
  Sender: FDA-Public Use
  Company Number: US-AMGEN-USASP2012025709

PATIENT
  Age: 63 Year
  Sex: Female
  Weight: 99.773 kg

DRUGS (4)
  1. HUMIRA [Concomitant]
     Indication: PSORIASIS
     Dosage: 40 MG, ONCE IN 2 WK
     Route: 058
     Dates: start: 20100201
  2. MELOXICAM [Concomitant]
     Indication: OSTEOARTHRITIS
     Dosage: AS REQUIRED
  3. OXYBUTYNIN CHLORIDE [Concomitant]
     Indication: INCONTINENCE
     Dosage: UNK
  4. ENBREL [Suspect]
     Indication: PSORIASIS
     Dosage: UNK
     Route: 058
     Dates: start: 20060101, end: 20100101

REACTIONS (6)
  - OROPHARYNGEAL PAIN [None]
  - NASOPHARYNGITIS [None]
  - SINUSITIS [None]
  - DRUG INEFFECTIVE [None]
  - OSTEOARTHRITIS [None]
  - MULTIPLE ALLERGIES [None]
